FAERS Safety Report 18472712 (Version 1)
Quarter: 2020Q4

REPORT INFORMATION
  Report Type: Spontaneous
  Country: US (occurrence: US)
  Receive Date: 20201104
  Receipt Date: 20201104
  Transmission Date: 20210114
  Serious: Yes (Hospitalization)
  Sender: FDA-Public Use
  Company Number: None

PATIENT
  Age: 40 Year
  Sex: Male
  Weight: 78 kg

DRUGS (1)
  1. QUETIAPINE (QUETIAPINE FUMARATE 300MG TAB) [Suspect]
     Active Substance: QUETIAPINE FUMARATE
     Indication: ANXIETY
     Route: 048
     Dates: start: 20161010

REACTIONS (4)
  - Sedation [None]
  - Alcohol poisoning [None]
  - Intentional overdose [None]
  - Suicide attempt [None]

NARRATIVE: CASE EVENT DATE: 20200807
